FAERS Safety Report 16238870 (Version 1)
Quarter: 2019Q2

REPORT INFORMATION
  Report Type: Spontaneous
  Country: US (occurrence: US)
  Receive Date: 20190424
  Receipt Date: 20190424
  Transmission Date: 20190711
  Serious: No
  Sender: FDA-Public Use
  Company Number: None

PATIENT
  Age: 91 Year
  Sex: Female
  Weight: 63 kg

DRUGS (9)
  1. SERTRALIN [Suspect]
     Active Substance: SERTRALINE HYDROCHLORIDE
     Indication: DEPRESSION
     Dosage: ?          QUANTITY:1 TABLET(S);?
     Route: 048
  2. MONTELUKAST [Concomitant]
     Active Substance: MONTELUKAST SODIUM
  3. FLUTICASONE. [Concomitant]
     Active Substance: FLUTICASONE
  4. LATANAPROST [Concomitant]
     Active Substance: LATANOPROST
  5. MULTI VIT. [Concomitant]
  6. FISH OIL [Concomitant]
     Active Substance: FISH OIL
  7. A REDES EYE SUPPORT [Concomitant]
  8. BRIMONIDINE [Concomitant]
     Active Substance: BRIMONIDINE TARTRATE
  9. SYMBICORT [Concomitant]
     Active Substance: BUDESONIDE\FORMOTEROL FUMARATE DIHYDRATE

REACTIONS (3)
  - Abnormal dreams [None]
  - Diarrhoea [None]
  - Confusional state [None]

NARRATIVE: CASE EVENT DATE: 20190423
